APPROVED DRUG PRODUCT: PLASMA-LYTE 56 AND DEXTROSE 5% IN PLASTIC CONTAINER
Active Ingredient: DEXTROSE; MAGNESIUM ACETATE TETRAHYDRATE; POTASSIUM ACETATE; SODIUM CHLORIDE
Strength: 5GM/100ML;32MG/100ML;128MG/100ML;234MG/100ML
Dosage Form/Route: INJECTABLE;INJECTION
Application: N017385 | Product #001
Applicant: BAXTER HEALTHCARE CORP
Approved: Approved Prior to Jan 1, 1982 | RLD: No | RS: No | Type: DISCN